FAERS Safety Report 7572309-4 (Version None)
Quarter: 2011Q2

REPORT INFORMATION
  Report Type: 
  Country: None (occurrence: None)
  Receive Date: 20110624
  Receipt Date: 20110614
  Transmission Date: 20111010
  Serious: Yes (Hospitalization, Other)
  Sender: FDA-Public Use
  Company Number: PHHY2011DK42532

PATIENT
  Age: 64 Year
  Sex: Female

DRUGS (1)
  1. DICLOFENAC SODIUM [Suspect]
     Indication: OSTEOARTHRITIS
     Dosage: 50 MG, TID
     Route: 048

REACTIONS (11)
  - GASTRITIS [None]
  - ABDOMINAL PAIN [None]
  - FIBROSIS [None]
  - DIARRHOEA [None]
  - COLONIC STENOSIS [None]
  - WEIGHT DECREASED [None]
  - LYMPHADENOPATHY [None]
  - GASTROINTESTINAL DISORDER [None]
  - GASTRIC ULCER [None]
  - INFLAMMATION [None]
  - HYPOCHROMIC ANAEMIA [None]
